FAERS Safety Report 5898077-X (Version None)
Quarter: 2008Q3

REPORT INFORMATION
  Report Type: 
  Country: None (occurrence: None)
  Receive Date: 20080904
  Receipt Date: 20070724
  Transmission Date: 20090109
  Serious: Yes (Death, Other)
  Sender: FDA-Public Use
  Company Number: 200712099

PATIENT
  Age: 91 Year
  Sex: Male
  Weight: 90 kg

DRUGS (6)
  1. CARIMUNE NF [Suspect]
     Indication: ANTI-PLATELET ANTIBODY POSITIVE
     Dosage: 78 G QD IV
     Route: 042
     Dates: start: 20070719, end: 20070720
  2. CARIMUNE NF [Suspect]
     Indication: AUTOIMMUNE THROMBOCYTOPENIA
     Dosage: 78 G QD IV
     Route: 042
     Dates: start: 20070719, end: 20070720
  3. PANTOPRAZOLE SODIUM [Concomitant]
  4. SIMVASTATIN [Concomitant]
  5. LEVOTHYROXINE SODIUM [Concomitant]
  6. FOLIC ACID [Concomitant]

REACTIONS (3)
  - CONDITION AGGRAVATED [None]
  - DISEASE PROGRESSION [None]
  - RENAL IMPAIRMENT [None]
